FAERS Safety Report 7771232-X (Version None)
Quarter: 2011Q3

REPORT INFORMATION
  Report Type: 
  Country: None (occurrence: None)
  Receive Date: 20110922
  Receipt Date: 20101124
  Transmission Date: 20111222
  Serious: No
  Sender: FDA-Public Use
  Company Number: US-ASTRAZENECA-2010SE45856

PATIENT
  Age: 59 Year
  Sex: Female

DRUGS (11)
  1. RISPERDAL [Suspect]
     Dates: start: 20100901
  2. STEROIDS [Concomitant]
     Indication: INFLAMMATION
  3. SEROQUEL [Suspect]
     Indication: BIPOLAR DISORDER
     Route: 048
  4. SEROQUEL [Suspect]
     Indication: POST-TRAUMATIC STRESS DISORDER
     Route: 048
  5. SEROQUEL [Suspect]
     Route: 048
  6. SEROQUEL [Suspect]
     Route: 048
  7. STEROIDS [Concomitant]
     Indication: PAIN IN EXTREMITY
  8. SEROQUEL [Suspect]
     Route: 048
  9. JANUVIA [Concomitant]
  10. SEROQUEL [Suspect]
     Indication: AFFECTIVE DISORDER
     Route: 048
  11. TEN MEDICATIONS FOR DIABETES [Concomitant]

REACTIONS (9)
  - POOR PERIPHERAL CIRCULATION [None]
  - DRUG DOSE OMISSION [None]
  - PLANTAR FASCIITIS [None]
  - INSOMNIA [None]
  - NERVOUSNESS [None]
  - ACTIVITIES OF DAILY LIVING IMPAIRED [None]
  - DIABETES MELLITUS [None]
  - HYPERTENSION [None]
  - WRONG TECHNIQUE IN DRUG USAGE PROCESS [None]
